FAERS Safety Report 9161966 (Version 1)
Quarter: 2013Q1

REPORT INFORMATION
  Report Type: Spontaneous
  Country: US (occurrence: US)
  Receive Date: 20130314
  Receipt Date: 20130314
  Transmission Date: 20140127
  Serious: Yes (Other)
  Sender: FDA-Public Use
  Company Number: US-JNJFOC-20130304289

PATIENT
  Age: 63 None
  Sex: Female
  Weight: 115.67 kg

DRUGS (10)
  1. ULTRAM [Suspect]
     Indication: PAIN
     Dosage: TWICE A DAY
     Route: 065
  2. ULTRAM [Suspect]
     Indication: PAIN
     Dosage: THRICE A DAY
     Route: 065
     Dates: start: 20130212
  3. ULTRAM [Suspect]
     Indication: PAIN
     Dosage: TWICE ADAY??NDC/PCR # 65162-062711
     Route: 065
  4. LYRICA [Suspect]
     Indication: RHEUMATOID ARTHRITIS
     Route: 048
     Dates: end: 20130115
  5. LYRICA [Suspect]
     Indication: RHEUMATOID ARTHRITIS
     Dosage: 150 MG TWICE A DAY??NDC/PCR # 00071  1016-68
     Route: 048
     Dates: start: 2010
  6. LYRICA [Suspect]
     Indication: FIBROMYALGIA
     Route: 048
     Dates: end: 20130115
  7. LYRICA [Suspect]
     Indication: FIBROMYALGIA
     Dosage: 150 MG TWICE A DAY??NDC/PCR # 00071  1016-68
     Route: 048
     Dates: start: 2010
  8. SIMVASTATIN [Concomitant]
     Indication: BLOOD CHOLESTEROL INCREASED
     Route: 065
  9. CELEXA [Concomitant]
     Indication: DEPRESSION
     Route: 065
  10. LOSARTAN POTASSIUM [Concomitant]
     Indication: HYPERTENSION
     Dosage: 100/25 MG DAILY
     Route: 048

REACTIONS (5)
  - Joint range of motion decreased [Not Recovered/Not Resolved]
  - Pain in extremity [Not Recovered/Not Resolved]
  - Insomnia [Unknown]
  - Treatment noncompliance [Unknown]
  - Pain [Not Recovered/Not Resolved]
